FAERS Safety Report 20529688 (Version 3)
Quarter: 2022Q1

REPORT INFORMATION
  Report Type: Report from Study
  Country: FR (occurrence: FR)
  Receive Date: 20220301
  Receipt Date: 20220309
  Transmission Date: 20220423
  Serious: Yes (Other)
  Sender: FDA-Public Use
  Company Number: FR-GILEAD-2022-0566780

PATIENT
  Sex: Female
  Weight: 71 kg

DRUGS (4)
  1. SACITUZUMAB GOVITECAN [Suspect]
     Active Substance: SACITUZUMAB GOVITECAN
     Indication: Triple negative breast cancer
     Dosage: D1 23NOV2021, DAY 8 30NOV2021
     Route: 065
     Dates: start: 20211123, end: 20211130
  2. SACITUZUMAB GOVITECAN [Suspect]
     Active Substance: SACITUZUMAB GOVITECAN
     Dosage: 10 MG/KG, CYCLE 2 DAY 1 15DEC2021, DAY 8 22DEC2021
     Route: 065
     Dates: start: 20211215, end: 20211222
  3. SACITUZUMAB GOVITECAN [Suspect]
     Active Substance: SACITUZUMAB GOVITECAN
     Dosage: 10 MG/KG, CYCLE 3 DAY 1 12JAN2022, DAY 8 19JAN2022
     Route: 065
     Dates: start: 20220112, end: 20220119
  4. SACITUZUMAB GOVITECAN [Suspect]
     Active Substance: SACITUZUMAB GOVITECAN
     Dosage: 10 MG/KG
     Route: 042
     Dates: start: 20220209, end: 20220216

REACTIONS (3)
  - Pneumonia [Unknown]
  - Respiratory disorder [Recovered/Resolved]
  - Off label use [Recovered/Resolved]

NARRATIVE: CASE EVENT DATE: 20220112
